FAERS Safety Report 10098619 (Version 2)
Quarter: 2014Q3

REPORT INFORMATION
  Report Type: Spontaneous
  Country: FR (occurrence: FR)
  Receive Date: 20140423
  Receipt Date: 20140702
  Transmission Date: 20150326
  Serious: Yes (Hospitalization, Other)
  Sender: FDA-Public Use
  Company Number: FR-PFIZER INC-2014109867

PATIENT
  Age: 60 Year
  Sex: Male

DRUGS (12)
  1. URBANYL [Suspect]
     Active Substance: CLOBAZAM
     Dosage: 10 MG, 1X/DAY
     Route: 048
  2. LAMICTAL [Suspect]
     Active Substance: LAMOTRIGINE
     Dosage: 25 MG, 1X/DAY
     Route: 048
     Dates: end: 20140319
  3. RIVOTRIL [Suspect]
     Active Substance: CLONAZEPAM
     Dosage: 1 MG/ML, AS NEEDED
     Route: 030
     Dates: end: 20140319
  4. INEXIUM [Concomitant]
     Active Substance: ESOMEPRAZOLE
     Dosage: 40 MG, 1X/DAY IN THE EVENING
     Route: 048
  5. SCOPODERM TTS [Concomitant]
     Active Substance: SCOPOLAMINE
     Dosage: 1 MG, EVERY 72 HOURS
     Route: 062
  6. NORSET [Suspect]
     Active Substance: MIRTAZAPINE
     Dosage: 45 MG, 1X/DAY
     Route: 048
     Dates: end: 20140401
  7. DIPIPERON [Suspect]
     Active Substance: PIPAMPERONE
     Dosage: 5 GTT OF 40 MG/ML SOLUTION, 3X/DAY
     Route: 048
     Dates: end: 20140319
  8. RISPERDAL [Suspect]
     Active Substance: RISPERIDONE
     Dosage: 6 MG, 1X/DAY
     Route: 048
  9. XANAX [Suspect]
     Active Substance: ALPRAZOLAM
     Dosage: 0.5 TABLET OF 0.25 MG, 3X/DAY
     Route: 048
  10. COUMADINE [Concomitant]
     Active Substance: WARFARIN SODIUM
     Dosage: 0.5 TABLET OF 5 MG, 1X/DAY AT NOON
     Route: 048
     Dates: end: 20140326
  11. XATRAL LP [Concomitant]
     Active Substance: ALFUZOSIN
     Dosage: 10 MG, 1X/DAY IN THE EVENING
     Route: 048
  12. TIAPRIDAL [Suspect]
     Active Substance: TIAPRIDE HYDROCHLORIDE
     Dosage: UNK
     Route: 048

REACTIONS (7)
  - Constipation [Recovered/Resolved]
  - Altered state of consciousness [Recovered/Resolved]
  - Somnolence [Recovered/Resolved]
  - Accidental overdose [Recovered/Resolved]
  - Coma [Recovered/Resolved]
  - Urinary retention [Recovered/Resolved]
  - Aphasia [Unknown]

NARRATIVE: CASE EVENT DATE: 20140319
